FAERS Safety Report 13742731 (Version 3)
Quarter: 2018Q1

REPORT INFORMATION
  Report Type: Spontaneous
  Country: JP (occurrence: JP)
  Receive Date: 20170711
  Receipt Date: 20180122
  Transmission Date: 20180508
  Serious: Yes (Hospitalization, Other)
  Sender: FDA-Public Use
  Company Number: JP-MYLANLABS-2017M1040624

PATIENT
  Age: 67 Year
  Sex: Female
  Weight: 43 kg

DRUGS (22)
  1. DEXART [Concomitant]
     Active Substance: DEXAMETHASONE SODIUM PHOSPHATE
     Indication: ANTIEMETIC SUPPORTIVE CARE
     Dosage: 9.9 MG, TID
     Route: 042
     Dates: start: 20150618, end: 20150618
  2. ALOXI [Concomitant]
     Active Substance: PALONOSETRON HYDROCHLORIDE
     Indication: PROPHYLAXIS OF NAUSEA AND VOMITING
     Dosage: 0.75 MG, TID
     Route: 041
     Dates: start: 20150618, end: 20150618
  3. POLARAMINE [Concomitant]
     Active Substance: DEXCHLORPHENIRAMINE MALEATE
     Dosage: 5 MG, TID
     Route: 041
     Dates: start: 20150702, end: 20150702
  4. PACLITAXEL NK [Suspect]
     Active Substance: PACLITAXEL
     Indication: NON-SMALL CELL LUNG CANCER STAGE IIIA
     Dosage: 50 MG, TID
     Route: 041
     Dates: start: 20150618, end: 20150618
  5. PACLITAXEL NK [Suspect]
     Active Substance: PACLITAXEL
     Dosage: 50 MG, TID
     Route: 041
     Dates: start: 20150625, end: 20150625
  6. DEXART [Concomitant]
     Active Substance: DEXAMETHASONE SODIUM PHOSPHATE
     Dosage: 9.9 MG, TID
     Route: 042
     Dates: start: 20150625, end: 20150625
  7. DECADRON [Concomitant]
     Active Substance: DEXAMETHASONE
     Dosage: 8 MG, BID
     Route: 048
     Dates: start: 20150625, end: 20150625
  8. DECADRON [Concomitant]
     Active Substance: DEXAMETHASONE
     Dosage: 8 MG, BID
     Route: 048
     Dates: start: 20150702, end: 20150702
  9. GASTER [Concomitant]
     Active Substance: FAMOTIDINE
     Indication: PROPHYLAXIS OF NAUSEA AND VOMITING
     Dosage: 20 MG, TID
     Route: 041
     Dates: start: 20150618, end: 20150618
  10. DECADRON [Concomitant]
     Active Substance: DEXAMETHASONE
     Indication: ANTIEMETIC SUPPORTIVE CARE
     Dosage: 8 MG, BID
     Route: 048
     Dates: start: 20150618, end: 20150618
  11. ALOXI [Concomitant]
     Active Substance: PALONOSETRON HYDROCHLORIDE
     Dosage: 0.75 MG, TID
     Route: 041
     Dates: start: 20150625, end: 20150625
  12. GASTER [Concomitant]
     Active Substance: FAMOTIDINE
     Dosage: 20 MG, TID
     Route: 041
     Dates: start: 20150625, end: 20150625
  13. GLUCOSE INJECTION [Concomitant]
     Active Substance: DEXTROSE
     Indication: INFUSION
     Route: 041
  14. CARBOPLATIN INJ. 50MG ^NK^ [Suspect]
     Active Substance: CARBOPLATIN
     Dosage: 150 MG, QD
     Route: 041
     Dates: start: 20150625, end: 20150625
  15. CARBOPLATIN INJ. 50MG ^NK^ [Suspect]
     Active Substance: CARBOPLATIN
     Indication: NON-SMALL CELL LUNG CANCER STAGE IIIA
     Dosage: 150 MG, QD
     Route: 041
     Dates: start: 20150618, end: 20150618
  16. ALOXI [Concomitant]
     Active Substance: PALONOSETRON HYDROCHLORIDE
     Dosage: 0.75 MG, TID
     Route: 041
     Dates: start: 20150702, end: 20150702
  17. POLARAMINE [Concomitant]
     Active Substance: DEXCHLORPHENIRAMINE MALEATE
     Dosage: 5 MG, TID
     Route: 041
     Dates: start: 20150625, end: 20150625
  18. CARBOPLATIN INJ. 50MG ^NK^ [Suspect]
     Active Substance: CARBOPLATIN
     Dosage: 150 MG, TID
     Route: 041
     Dates: start: 20150702, end: 20150702
  19. PACLITAXEL NK [Suspect]
     Active Substance: PACLITAXEL
     Dosage: 50 MG, TID
     Route: 041
     Dates: start: 20150702, end: 20150702
  20. DEXART [Concomitant]
     Active Substance: DEXAMETHASONE SODIUM PHOSPHATE
     Dosage: 9.9 MG, TID
     Route: 042
     Dates: start: 20150702, end: 20150702
  21. GASTER [Concomitant]
     Active Substance: FAMOTIDINE
     Dosage: 20 MG, TID
     Route: 041
     Dates: start: 20150702, end: 20150702
  22. POLARAMINE [Concomitant]
     Active Substance: DEXCHLORPHENIRAMINE MALEATE
     Indication: PROPHYLAXIS OF NAUSEA AND VOMITING
     Dosage: 5 MG, TID
     Route: 041
     Dates: start: 20150618, end: 20150618

REACTIONS (6)
  - Emphysematous cystitis [Recovered/Resolved]
  - Emphysematous pyelonephritis [Recovered/Resolved]
  - Bone marrow failure [Unknown]
  - Klebsiella infection [Recovered/Resolved]
  - Diabetes mellitus inadequate control [Unknown]
  - Urinary tract obstruction [Unknown]

NARRATIVE: CASE EVENT DATE: 20150708
